FAERS Safety Report 12525471 (Version 1)
Quarter: 2016Q3

REPORT INFORMATION
  Report Type: Spontaneous
  Country: US (occurrence: US)
  Receive Date: 20160704
  Receipt Date: 20160704
  Transmission Date: 20161109
  Serious: No
  Sender: FDA-Public Use
  Company Number: US-AMGEN-USASP2016083181

PATIENT
  Age: 62 Year
  Sex: Female

DRUGS (1)
  1. ENBREL [Suspect]
     Active Substance: ETANERCEPT
     Indication: JUVENILE IDIOPATHIC ARTHRITIS
     Dosage: 25 MG, QWK
     Route: 065

REACTIONS (7)
  - Injection site erythema [Unknown]
  - Increased tendency to bruise [Unknown]
  - Hair disorder [Unknown]
  - Contusion [Unknown]
  - Skin disorder [Unknown]
  - Injection site bruising [Unknown]
  - Off label use [Unknown]
